FAERS Safety Report 25074149 (Version 1)
Quarter: 2025Q1

REPORT INFORMATION
  Report Type: Spontaneous
  Country: US (occurrence: None)
  Receive Date: 20250312
  Receipt Date: 20250312
  Transmission Date: 20250409
  Serious: Yes (Death)
  Sender: FDA-CTU
  Company Number: None

PATIENT
  Age: 79 Year
  Sex: Female
  Weight: 89.7 kg

DRUGS (2)
  1. TACROLIMUS [Suspect]
     Active Substance: TACROLIMUS
     Indication: Renal transplant
     Dosage: 0.5MG BID ORAL ?
     Route: 048
     Dates: start: 20230911, end: 20250305
  2. MYCOPHENOLIC ACID [Suspect]
     Active Substance: MYCOPHENOLIC ACID
     Indication: Renal transplant
     Dosage: 500MG BID ORAL ?
     Route: 048
     Dates: start: 20230131, end: 20250305

REACTIONS (1)
  - Death [None]

NARRATIVE: CASE EVENT DATE: 20250305
